FAERS Safety Report 7039816-4 (Version None)
Quarter: 2010Q4

REPORT INFORMATION
  Report Type: 
  Country: None (occurrence: None)
  Receive Date: 20101012
  Receipt Date: 20101004
  Transmission Date: 20110411
  Serious: Yes (Hospitalization)
  Sender: FDA-Public Use
  Company Number: IT-MERCK-1007USA00236

PATIENT
  Age: 45 Year
  Sex: Female

DRUGS (2)
  1. ZOCOR [Suspect]
     Indication: HYPERCHOLESTEROLAEMIA
     Route: 048
     Dates: start: 20090701, end: 20090801
  2. CYCLOSPORINE [Suspect]
     Indication: ALOPECIA UNIVERSALIS
     Route: 065
     Dates: start: 20090301, end: 20090801

REACTIONS (1)
  - RENAL FAILURE CHRONIC [None]
